FAERS Safety Report 6637945-8 (Version None)
Quarter: 2010Q1

REPORT INFORMATION
  Report Type: 
  Country: None (occurrence: None)
  Receive Date: 20100317
  Receipt Date: 20100310
  Transmission Date: 20100710
  Serious: Yes (Hospitalization)
  Sender: FDA-Public Use
  Company Number: PHHO2010IE03795

PATIENT
  Sex: Male
  Weight: 104 kg

DRUGS (8)
  1. BLINDED ALISKIREN ALI+TAB+CF [Suspect]
     Indication: CARDIAC FAILURE
     Dosage: CODE NOT BROKEN
     Route: 048
     Dates: start: 20091203, end: 20100303
  2. BLINDED ENALAPRIL COMP-ENA+ [Suspect]
     Indication: CARDIAC FAILURE
     Dosage: CODE NOT BROKEN
     Route: 048
     Dates: start: 20091203, end: 20100303
  3. BLINDED NO TREATMENT RECEIVED NOMED [Suspect]
     Indication: CARDIAC FAILURE
     Dosage: CODE NOT BROKEN
     Route: 048
     Dates: start: 20091203, end: 20100303
  4. ALISKIREN [Suspect]
  5. COMPARATOR ENALAPRIL [Suspect]
     Indication: CARDIAC FAILURE
  6. BISOPROLOL [Concomitant]
     Indication: CARDIAC FAILURE
     Dosage: UNK
  7. PERINDOPRIL [Concomitant]
     Indication: CARDIAC FAILURE
  8. ASPIRIN [Concomitant]

REACTIONS (5)
  - CARDIAC FAILURE [None]
  - CHEST PAIN [None]
  - DISEASE PROGRESSION [None]
  - DYSPNOEA [None]
  - PULMONARY OEDEMA [None]
